FAERS Safety Report 8900765 (Version 17)
Quarter: 2017Q2

REPORT INFORMATION
  Report Type: Report from Study
  Country: CA (occurrence: CA)
  Receive Date: 20121109
  Receipt Date: 20170502
  Transmission Date: 20170830
  Serious: Yes (Other)
  Sender: FDA-Public Use
  Company Number: PHHY2009CA46015

PATIENT
  Age: 53 Year
  Sex: Female
  Weight: 47.62 kg

DRUGS (5)
  1. DOSTINEX [Concomitant]
     Active Substance: CABERGOLINE
     Indication: PRODUCT USED FOR UNKNOWN INDICATION
     Dosage: 0.5 MG, QW
     Route: 048
  2. SANDOSTATIN LAR DEPOT [Suspect]
     Active Substance: OCTREOTIDE ACETATE
     Dosage: 20 MG, QMO (ONCE A MONTH)
     Route: 030
     Dates: start: 20150519
  3. SANDOSTATIN LAR DEPOT [Suspect]
     Active Substance: OCTREOTIDE ACETATE
     Dosage: 20 MG, QMO (EVERY 4 WEEKS)
     Route: 030
  4. SANDOSTATIN LAR DEPOT [Suspect]
     Active Substance: OCTREOTIDE ACETATE
     Indication: ACROMEGALY
     Dosage: 20 MG, QMO (EVERY 4 WEEKS)
     Route: 030
  5. SANDOSTATIN LAR DEPOT [Suspect]
     Active Substance: OCTREOTIDE ACETATE
     Dosage: 20 MG, QMO (EVERY 4 WEEKS)
     Route: 030
     Dates: start: 20040101

REACTIONS (23)
  - Blood pressure diastolic decreased [Unknown]
  - Muscle tightness [Unknown]
  - Needle issue [Unknown]
  - Hyperglycaemia [Unknown]
  - Injection site discomfort [Not Recovered/Not Resolved]
  - Diarrhoea [Unknown]
  - Hot flush [Recovering/Resolving]
  - Night sweats [Unknown]
  - Fatigue [Unknown]
  - Burning sensation [Unknown]
  - Injection site mass [Recovered/Resolved]
  - Blood pressure diastolic increased [Unknown]
  - Injection site pain [Not Recovered/Not Resolved]
  - Chest pain [Unknown]
  - Myocardial necrosis marker increased [Unknown]
  - Sensory disturbance [Unknown]
  - Poor quality sleep [Unknown]
  - Anxiety [Unknown]
  - Injection site mass [Recovering/Resolving]
  - Uterine polyp [Unknown]
  - Pain in extremity [Unknown]
  - Blood pressure increased [Unknown]
  - Myalgia [Unknown]

NARRATIVE: CASE EVENT DATE: 20140304
